FAERS Safety Report 7403068-3 (Version None)
Quarter: 2011Q2

REPORT INFORMATION
  Report Type: 
  Country: None (occurrence: None)
  Receive Date: 20110408
  Receipt Date: 20110304
  Transmission Date: 20111010
  Serious: No
  Sender: FDA-Public Use
  Company Number: US-NOVEN-11US001919

PATIENT
  Age: 48 Year
  Sex: Female

DRUGS (1)
  1. FENTANYL [Suspect]
     Indication: BACK INJURY
     Dosage: 75 UG
     Route: 062
     Dates: start: 20050101

REACTIONS (2)
  - INADEQUATE ANALGESIA [None]
  - PRODUCT QUALITY ISSUE [None]
